FAERS Safety Report 6550942-6 (Version None)
Quarter: 2010Q1

REPORT INFORMATION
  Report Type: 
  Country: None (occurrence: None)
  Receive Date: 20100125
  Receipt Date: 20100111
  Transmission Date: 20100710
  Serious: Yes (Other)
  Sender: FDA-Public Use
  Company Number: TR-MYLANLABS-2010S1000414

PATIENT
  Age: 38 Year
  Sex: Female

DRUGS (4)
  1. LAMOTRIGINE [Suspect]
     Indication: BIPOLAR II DISORDER
     Route: 048
  2. LAMOTRIGINE [Suspect]
     Route: 048
  3. OLANZAPINE [Concomitant]
     Indication: BIPOLAR II DISORDER
     Route: 048
  4. CITALOPRAM [Concomitant]
     Indication: BIPOLAR II DISORDER
     Route: 065

REACTIONS (1)
  - OBSESSIVE-COMPULSIVE DISORDER [None]
